FAERS Safety Report 10207049 (Version 1)
Quarter: 2014Q2

REPORT INFORMATION
  Report Type: Spontaneous
  Country: US (occurrence: US)
  Receive Date: 20140530
  Receipt Date: 20140530
  Transmission Date: 20141212
  Serious: No
  Sender: FDA-Public Use
  Company Number: US-PFIZER INC-2013367744

PATIENT
  Age: 10 Year
  Sex: Female
  Weight: 29.48 kg

DRUGS (1)
  1. CHILDREN^S MOTRIN [Suspect]
     Indication: HEADACHE
     Dosage: TWO TEASPOONS, ONCE
     Route: 048
     Dates: start: 20130915, end: 20130915

REACTIONS (3)
  - Eye swelling [Recovering/Resolving]
  - Secretion discharge [Recovering/Resolving]
  - Pruritus [Recovering/Resolving]
